FAERS Safety Report 16590814 (Version 4)
Quarter: 2021Q3

REPORT INFORMATION
  Report Type: Spontaneous
  Country: US (occurrence: US)
  Receive Date: 20190718
  Receipt Date: 20210921
  Transmission Date: 20211014
  Serious: Yes (Other)
  Sender: FDA-Public Use
  Company Number: US-PFIZER INC-2019301605

PATIENT
  Age: 50 Year
  Sex: Female

DRUGS (9)
  1. TRULICITY [Concomitant]
     Active Substance: DULAGLUTIDE
     Dosage: 0.75 MG (.7SMG/O.S PEN INJCTR)
  2. MODERNA COVID?19 VACCINE [Concomitant]
     Active Substance: CX-024414
  3. XELJANZ XR [Suspect]
     Active Substance: TOFACITINIB CITRATE
     Dosage: 11 MG, DAILY
     Route: 048
     Dates: start: 201910
  4. PREDNISONE. [Concomitant]
     Active Substance: PREDNISONE
     Dosage: UNK (10 MG)
  5. XELJANZ XR [Suspect]
     Active Substance: TOFACITINIB CITRATE
     Indication: PSORIATIC ARTHROPATHY
     Dosage: 11 MG, DAILY
     Route: 048
     Dates: start: 20181001
  6. ALEVE [Concomitant]
     Active Substance: NAPROXEN SODIUM
     Dosage: UNK (220 MG)
  7. XELJANZ XR [Suspect]
     Active Substance: TOFACITINIB CITRATE
     Dosage: 11 MG, DAILY
     Route: 048
     Dates: start: 2019
  8. HYDROCHLOROTHIAZIDE. [Concomitant]
     Active Substance: HYDROCHLOROTHIAZIDE
     Dosage: UNK (25 MG)
  9. LOSARTAN POTASSIUM. [Concomitant]
     Active Substance: LOSARTAN POTASSIUM
     Dosage: UNK (100 MG)

REACTIONS (9)
  - Arthropathy [Unknown]
  - Pain [Unknown]
  - Sensitivity to weather change [Unknown]
  - Cough [Recovered/Resolved]
  - Seasonal allergy [Unknown]
  - Condition aggravated [Unknown]
  - Joint injury [Unknown]
  - Dysphonia [Recovered/Resolved]
  - Bronchitis viral [Recovered/Resolved]

NARRATIVE: CASE EVENT DATE: 202108
